FAERS Safety Report 25925044 (Version 1)
Quarter: 2025Q4

REPORT INFORMATION
  Report Type: Report from Study
  Country: US (occurrence: US)
  Receive Date: 20251015
  Receipt Date: 20251015
  Transmission Date: 20260117
  Serious: Yes (Other)
  Sender: ABBVIE
  Company Number: US-ABBVIE-6414769

PATIENT
  Age: 57 Year
  Sex: Female

DRUGS (2)
  1. RINVOQ [Suspect]
     Active Substance: UPADACITINIB
     Indication: Colitis ulcerative
     Dosage: DOSE DECREASED, LAST ADMIN DATE: 2025
     Route: 048
     Dates: start: 20250604
  2. RINVOQ [Suspect]
     Active Substance: UPADACITINIB
     Indication: Colitis ulcerative
     Route: 048

REACTIONS (13)
  - Colectomy [Unknown]
  - Post procedural inflammation [Unknown]
  - Endodontic procedure [Recovering/Resolving]
  - Tooth disorder [Not Recovered/Not Resolved]
  - Drug ineffective [Unknown]
  - Frequent bowel movements [Unknown]
  - Pain of skin [Unknown]
  - Flatulence [Unknown]
  - Stool pH decreased [Unknown]
  - Gait disturbance [Unknown]
  - Diarrhoea [Unknown]
  - Muscle operation [Unknown]
  - Abnormal faeces [Unknown]

NARRATIVE: CASE EVENT DATE: 20250101
